FAERS Safety Report 10687584 (Version 1)
Quarter: 2014Q4

REPORT INFORMATION
  Report Type: Spontaneous
  Country: US (occurrence: None)
  Receive Date: 20141231
  Receipt Date: 20141231
  Transmission Date: 20150529
  Serious: No
  Sender: FDA-Public Use
  Company Number: None

PATIENT
  Age: 54 Year
  Sex: Male
  Weight: 69.9 kg

DRUGS (19)
  1. IBUPROFEN. [Concomitant]
     Active Substance: IBUPROFEN
  2. HYDROMORPHONE [Concomitant]
     Active Substance: HYDROMORPHONE
  3. VELCADE [Suspect]
     Active Substance: BORTEZOMIB
     Indication: PLASMA CELL MYELOMA
     Dosage: D 1, 4, 8, 11
     Route: 042
     Dates: start: 20141209, end: 20141219
  4. ACYCLOVIR. [Concomitant]
     Active Substance: ACYCLOVIR
  5. OMEPRAZOLE. [Concomitant]
     Active Substance: OMEPRAZOLE
  6. ATORVASTATIN [Concomitant]
     Active Substance: ATORVASTATIN
  7. CHOLECALCIFEROL [Concomitant]
     Active Substance: CHOLECALCIFEROL
  8. VITAMIN B COMPLEX [Concomitant]
     Active Substance: CYANOCOBALAMIN\DEXPANTHENOL\NIACINAMIDE\PYRIDOXINE HYDROCHLORIDE\RIBOFLAVIN 5^-PHOSPHATE SODIUM\THIAMINE HYDROCHLORIDE\VITAMIN B COMPLEX
  9. LENALIDOMIDE [Suspect]
     Active Substance: LENALIDOMIDE
     Indication: PLASMA CELL MYELOMA
     Dosage: DAYS 1-14
     Route: 048
     Dates: start: 20141209, end: 20141222
  10. POLYETHYLENE GLYCOL [Concomitant]
     Active Substance: POLYETHYLENE GLYCOLS
  11. OXYCODONE HYDROCHLORIDE IR [Concomitant]
     Active Substance: OXYCODONE HYDROCHLORIDE
  12. OXYCODONE HCL CONTROLLED-RELEASE [Concomitant]
     Active Substance: OXYCODONE HYDROCHLORIDE
  13. ATROVASTATIN [Concomitant]
     Active Substance: ATORVASTATIN CALCIUM
  14. SENNA-DOCUSATE [Concomitant]
  15. NACL [Concomitant]
     Active Substance: SODIUM CHLORIDE
  16. DEXAMETHASONE. [Concomitant]
     Active Substance: DEXAMETHASONE
  17. ENOXAPARIN [Concomitant]
     Active Substance: ENOXAPARIN
  18. COLCHICINE. [Concomitant]
     Active Substance: COLCHICINE
  19. VITAMIN E [Concomitant]
     Active Substance: .ALPHA.-TOCOPHEROL

REACTIONS (6)
  - Pericardial effusion [None]
  - Pleuritic pain [None]
  - Chest pain [None]
  - Pericarditis [None]
  - Pleural effusion [None]
  - Pneumonia [None]

NARRATIVE: CASE EVENT DATE: 20141228
